FAERS Safety Report 9743879 (Version 1)
Quarter: 2013Q4

REPORT INFORMATION
  Report Type: Spontaneous
  Country: US (occurrence: US)
  Receive Date: 20131210
  Receipt Date: 20131210
  Transmission Date: 20140711
  Serious: No
  Sender: FDA-Public Use
  Company Number: US-BIOGENIDEC-2013BI098175

PATIENT
  Age: 58 Year
  Sex: Female
  Weight: 74 kg

DRUGS (9)
  1. TECFIDERA [Suspect]
     Indication: MULTIPLE SCLEROSIS
     Route: 048
     Dates: start: 20131002
  2. TECFIDERA [Suspect]
     Indication: MULTIPLE SCLEROSIS
     Route: 048
  3. COUMADIN [Concomitant]
  4. CALCIUM [Concomitant]
  5. CRANBERRY [Concomitant]
  6. OSTEO BI-FLEX [Concomitant]
  7. OCUVITE [Concomitant]
  8. FISH OIL [Concomitant]
  9. ACIDOPHILUS [Concomitant]

REACTIONS (3)
  - Flushing [Recovered/Resolved with Sequelae]
  - Burning sensation [Recovered/Resolved with Sequelae]
  - Diarrhoea [Recovered/Resolved]
